FAERS Safety Report 5704840-8 (Version None)
Quarter: 2008Q2

REPORT INFORMATION
  Report Type: 
  Country: None (occurrence: None)
  Receive Date: 20080414
  Receipt Date: 20080403
  Transmission Date: 20081010
  Serious: Yes (Hospitalization, Other)
  Sender: FDA-Public Use
  Company Number: US-ELI_LILLY_AND_COMPANY-US200802003304

PATIENT
  Sex: Female

DRUGS (3)
  1. FORTEO [Suspect]
     Dosage: UNK, UNK
     Dates: start: 20030101, end: 20050101
  2. FORTEO [Suspect]
     Dates: start: 20071101
  3. AMLODIPIN /00972401/ [Concomitant]
     Indication: BLOOD PRESSURE
     Dates: start: 20070401

REACTIONS (2)
  - PARATHYROID GLAND ENLARGEMENT [None]
  - RESORPTION BONE INCREASED [None]
